FAERS Safety Report 24311125 (Version 1)
Quarter: 2024Q3

REPORT INFORMATION
  Report Type: Report from Study
  Country: MX (occurrence: MX)
  Receive Date: 20240912
  Receipt Date: 20240912
  Transmission Date: 20241016
  Serious: Yes (Other)
  Sender: AMGEN
  Company Number: MX-AMGEN-MEXSL2024180236

PATIENT
  Age: 20 Year
  Sex: Male

DRUGS (1)
  1. BLINCYTO [Suspect]
     Active Substance: BLINATUMOMAB
     Indication: Acute lymphocytic leukaemia
     Dosage: 35 MICROGRAM, IN 28-DAY CYCLE
     Route: 065
     Dates: start: 20240905, end: 20240909

REACTIONS (6)
  - Unresponsive to stimuli [Unknown]
  - Hyperthermia [Unknown]
  - Platelet count decreased [Unknown]
  - Nervous system injury [Unknown]
  - Hypophagia [Unknown]
  - Somnolence [Unknown]

NARRATIVE: CASE EVENT DATE: 20240909
